FAERS Safety Report 18294444 (Version 1)
Quarter: 2020Q3

REPORT INFORMATION
  Report Type: Spontaneous
  Country: US (occurrence: US)
  Receive Date: 20200922
  Receipt Date: 20200922
  Transmission Date: 20201103
  Serious: Yes (Hospitalization)
  Sender: FDA-Public Use
  Company Number: None

PATIENT
  Sex: Male

DRUGS (17)
  1. CLINDAMYCIN. [Concomitant]
     Active Substance: CLINDAMYCIN
  2. HYDROXYZ HCL [Concomitant]
     Active Substance: HYDROXYZINE HYDROCHLORIDE
  3. TIZANIDINE. [Concomitant]
     Active Substance: TIZANIDINE
  4. BELSOMRA [Concomitant]
     Active Substance: SUVOREXANT
  5. OXYCODONE AND ACETAMINOPHEN [Concomitant]
     Active Substance: ACETAMINOPHEN\OXYCODONE HYDROCHLORIDE
  6. XTAMPZA ER [Concomitant]
     Active Substance: OXYCODONE
  7. FOLIC ACID. [Concomitant]
     Active Substance: FOLIC ACID
  8. ENBREL [Suspect]
     Active Substance: ETANERCEPT
     Route: 058
     Dates: start: 20190220
  9. HYDROCO/APAP [Concomitant]
     Active Substance: ACETAMINOPHEN\HYDROCODONE
  10. PROAIR HFA [Concomitant]
     Active Substance: ALBUTEROL SULFATE
  11. ATORVASTATIN [Concomitant]
     Active Substance: ATORVASTATIN
  12. MONTELUKAST [Concomitant]
     Active Substance: MONTELUKAST SODIUM
  13. NABUMETONE. [Concomitant]
     Active Substance: NABUMETONE
  14. OLMESA MEDOX [Concomitant]
  15. PAROXETINE. [Concomitant]
     Active Substance: PAROXETINE
  16. TAMSULOSIN [Concomitant]
     Active Substance: TAMSULOSIN
  17. DILTIAZEM ER [Concomitant]
     Active Substance: DILTIAZEM

REACTIONS (2)
  - Gastrectomy [None]
  - Therapy interrupted [None]
